FAERS Safety Report 8073375-2 (Version None)
Quarter: 2012Q1

REPORT INFORMATION
  Report Type: 
  Country: None (occurrence: None)
  Receive Date: 20120126
  Receipt Date: 20120123
  Transmission Date: 20120608
  Serious: Yes (Other)
  Sender: FDA-Public Use
  Company Number: US-ACTELION-A-US2012-60229

PATIENT

DRUGS (1)
  1. VENTAVIS [Suspect]
     Indication: PULMONARY ARTERIAL HYPERTENSION
     Dosage: UNK, Q3H
     Route: 055
     Dates: start: 20110701

REACTIONS (3)
  - BIOPSY LUNG [None]
  - PULMONARY VENO-OCCLUSIVE DISEASE [None]
  - DYSPNOEA [None]
